FAERS Safety Report 6382350-5 (Version None)
Quarter: 2009Q3

REPORT INFORMATION
  Report Type: 
  Country: None (occurrence: None)
  Receive Date: 20090930
  Receipt Date: 20090922
  Transmission Date: 20100115
  Serious: Yes (Hospitalization, Other)
  Sender: FDA-Public Use
  Company Number: US-JNJCH-2009025694

PATIENT
  Age: 10 Year
  Sex: Male

DRUGS (1)
  1. BENADRYL [Suspect]
     Indication: INCORRECT ROUTE OF DRUG ADMINISTRATION
     Dosage: TEXT:UNSPECIFIED
     Route: 048

REACTIONS (2)
  - ACCIDENTAL EXPOSURE [None]
  - ALTERED STATE OF CONSCIOUSNESS [None]
